FAERS Safety Report 23672221 (Version 1)
Quarter: 2024Q1

REPORT INFORMATION
  Report Type: Spontaneous
  Country: US (occurrence: US)
  Receive Date: 20240326
  Receipt Date: 20240326
  Transmission Date: 20240410
  Serious: Yes (Other)
  Sender: FDA-Public Use
  Company Number: US-CIPLA LTD.-2024US02878

PATIENT

DRUGS (1)
  1. SERTRALINE [Suspect]
     Active Substance: SERTRALINE HYDROCHLORIDE
     Dosage: UNK
     Route: 064

REACTIONS (6)
  - Foetal growth restriction [Unknown]
  - Brain abscess [Recovering/Resolving]
  - Meningitis pneumococcal [Recovering/Resolving]
  - Otorrhoea [Unknown]
  - Seizure [Recovered/Resolved]
  - Foetal exposure during pregnancy [Unknown]
